FAERS Safety Report 16760562 (Version 7)
Quarter: 2019Q3

REPORT INFORMATION
  Report Type: Report from Study
  Country: KR (occurrence: KR)
  Receive Date: 20190830
  Receipt Date: 20190924
  Transmission Date: 20191005
  Serious: Yes (Hospitalization)
  Sender: FDA-Public Use
  Company Number: PHHO2019KR008428

PATIENT
  Age: 58 Year
  Sex: Male

DRUGS (14)
  1. FAMOTIDINE. [Concomitant]
     Active Substance: FAMOTIDINE
     Indication: GASTRITIS PROPHYLAXIS
     Route: 065
     Dates: start: 20190813
  2. COMPARATOR PEMETREXED [Suspect]
     Active Substance: PEMETREXED DISODIUM
     Indication: NON-SMALL CELL LUNG CANCER
     Dosage: UNK
     Route: 042
     Dates: start: 20190813
  3. PRITOR PLUS [Concomitant]
     Active Substance: TELMISARTAN
     Indication: HYPERTENSION
     Dosage: UNK
     Route: 065
     Dates: start: 20190101
  4. DEXAMETHASONE. [Concomitant]
     Active Substance: DEXAMETHASONE
     Indication: DRUG TOXICITY PROPHYLAXIS
     Route: 065
     Dates: start: 20190813
  5. COBAMAMIDE [Concomitant]
     Active Substance: COBAMAMIDE
     Indication: DRUG TOXICITY PROPHYLAXIS
     Route: 065
     Dates: start: 20190813
  6. CARVEDIOL [Concomitant]
     Active Substance: CARVEDILOL
     Indication: HYPERTENSION
     Dosage: UNK
     Route: 065
     Dates: start: 20190101
  7. PETHIDINE HCL [Concomitant]
     Indication: CANCER PAIN
     Dosage: UNK
     Route: 065
     Dates: start: 20190726
  8. GODEX CAPSULES [Concomitant]
     Indication: PROPHYLAXIS
     Route: 065
     Dates: start: 20190822
  9. COMPARATOR PEMBROLIZUMAB [Suspect]
     Active Substance: PEMBROLIZUMAB
     Indication: NON-SMALL CELL LUNG CANCER
     Dosage: UNK
     Route: 042
     Dates: start: 20190813
  10. COMPARATOR CARBOPLATIN [Suspect]
     Active Substance: CARBOPLATIN
     Indication: NON-SMALL CELL LUNG CANCER
     Dosage: UNK
     Route: 042
     Dates: start: 20190813
  11. FOLIC ACID. [Concomitant]
     Active Substance: FOLIC ACID
     Indication: DRUG TOXICITY PROPHYLAXIS
     Route: 065
     Dates: start: 20190813
  12. APREPITANT. [Concomitant]
     Active Substance: APREPITANT
     Indication: DRUG TOXICITY PROPHYLAXIS
     Route: 065
     Dates: start: 20190813
  13. ACZ885 [Suspect]
     Active Substance: CANAKINUMAB
     Indication: NON-SMALL CELL LUNG CANCER
     Dosage: 50MG/0.5ML
     Route: 058
     Dates: start: 20190813
  14. AMLODIPINE [Concomitant]
     Active Substance: AMLODIPINE BESYLATE
     Indication: HYPERTENSION
     Dosage: UNK
     Route: 065
     Dates: start: 20190101

REACTIONS (1)
  - Mesenteric artery thrombosis [Not Recovered/Not Resolved]

NARRATIVE: CASE EVENT DATE: 20190817
